FAERS Safety Report 11029741 (Version 2)
Quarter: 2015Q2

REPORT INFORMATION
  Report Type: Report from Study
  Country: US (occurrence: US)
  Receive Date: 20150415
  Receipt Date: 20150616
  Transmission Date: 20150821
  Serious: Yes (Hospitalization)
  Sender: FDA-Public Use
  Company Number: US-SA-2015SA045903

PATIENT
  Age: 87 Year
  Sex: Male

DRUGS (1)
  1. CERDELGA [Suspect]
     Active Substance: ELIGLUSTAT
     Indication: GAUCHER^S DISEASE
     Route: 048
     Dates: start: 20141229

REACTIONS (4)
  - Pharyngitis streptococcal [Recovering/Resolving]
  - Staphylococcal infection [Recovering/Resolving]
  - Fall [Not Recovered/Not Resolved]
  - Immune system disorder [Recovering/Resolving]

NARRATIVE: CASE EVENT DATE: 201506
